FAERS Safety Report 10467819 (Version 17)
Quarter: 2019Q3

REPORT INFORMATION
  Report Type: Report from Study
  Country: FR (occurrence: FR)
  Receive Date: 20140922
  Receipt Date: 20190919
  Transmission Date: 20191004
  Serious: Yes (Life-Threatening, Hospitalization)
  Sender: FDA-Public Use
  Company Number: FR-009507513-1409FRA001150

PATIENT
  Age: 43 Year
  Sex: Female
  Weight: 71 kg

DRUGS (4)
  1. PEMBROLIZUMAB. [Suspect]
     Active Substance: PEMBROLIZUMAB
     Indication: NEOPLASM MALIGNANT
     Dosage: 10 MG/KG, Q2W
     Route: 042
     Dates: start: 20140804, end: 20140804
  2. SOTALEX [Concomitant]
     Active Substance: SOTALOL
     Indication: TACHYCARDIA
     Dosage: 0.75 TABLET, BID
     Route: 048
     Dates: start: 20140626, end: 20140831
  3. STRESAM [Concomitant]
     Active Substance: ETIFOXINE
     Indication: ANXIETY
     Dosage: UNK
     Route: 048
     Dates: start: 20140804, end: 20140828
  4. PEMBROLIZUMAB. [Suspect]
     Active Substance: PEMBROLIZUMAB
     Indication: BREAST CANCER
     Dosage: 10 MG/KG, Q2W
     Route: 042
     Dates: start: 20140818, end: 20140818

REACTIONS (3)
  - Septic shock [Recovered/Resolved]
  - Pleural effusion [Recovered/Resolved]
  - Pericardial effusion [Recovered/Resolved]

NARRATIVE: CASE EVENT DATE: 20140818
